FAERS Safety Report 7951109-7 (Version None)
Quarter: 2011Q4

REPORT INFORMATION
  Report Type: 
  Country: None (occurrence: None)
  Receive Date: 20111201
  Receipt Date: 20111122
  Transmission Date: 20120403
  Serious: Yes (Other)
  Sender: FDA-Public Use
  Company Number: TR-BAYER-2011-111630

PATIENT
  Sex: Female
  Weight: 92 kg

DRUGS (1)
  1. INTERFERON BETA-1B [Suspect]
     Indication: MULTIPLE SCLEROSIS
     Dosage: 0.25 MG 3 TIMES AND 0.5 MG 2 TIMES
     Dates: start: 20111105

REACTIONS (3)
  - PALPITATIONS [None]
  - INJECTION SITE REACTION [None]
  - SOMNOLENCE [None]
